FAERS Safety Report 8699991 (Version 4)
Quarter: 2013Q4

REPORT INFORMATION
  Report Type: Spontaneous
  Country: DK (occurrence: None)
  Receive Date: 20120718
  Receipt Date: 20131213
  Transmission Date: 20140711
  Serious: Yes (Hospitalization)
  Sender: FDA-Public Use
  Company Number: 1341930

PATIENT
  Age: 57 Year
  Sex: Female

DRUGS (2)
  1. CARBOPLATIN [Suspect]
     Indication: UTERINE CANCER
     Dates: start: 20100503
  2. PLACITAXEL (MANUFACTURER UNKNOWN) (PACLITAXEL) (PACLITAXEL) [Suspect]
     Indication: UTERINE CANCER
     Route: 042
     Dates: start: 20100503, end: 20100902

REACTIONS (5)
  - Quality of life decreased [None]
  - Myoclonus [None]
  - Pain [None]
  - Fatigue [None]
  - Muscle spasms [None]
